FAERS Safety Report 8948197 (Version 1)
Quarter: 2012Q4

REPORT INFORMATION
  Report Type: 
  Country: CA (occurrence: CA)
  Receive Date: 20121204
  Receipt Date: 20121204
  Transmission Date: 20130627
  Serious: Yes (Other)
  Sender: FDA-Public Use
  Company Number: CA-ELI_LILLY_AND_COMPANY-CA201211006418

PATIENT
  Sex: Male

DRUGS (3)
  1. ZYPREXA [Suspect]
     Indication: BIPOLAR DISORDER
     Dosage: 40 mg, qd
     Dates: start: 2002
  2. EPIVAL [Concomitant]
  3. EFFEXOR [Concomitant]

REACTIONS (3)
  - Weight increased [Unknown]
  - Gait disturbance [Unknown]
  - Prescribed overdose [Unknown]
